FAERS Safety Report 23060566 (Version 1)
Quarter: 2023Q4

REPORT INFORMATION
  Report Type: Spontaneous
  Country: CN (occurrence: CN)
  Receive Date: 20231012
  Receipt Date: 20231012
  Transmission Date: 20240110
  Serious: Yes (Death, Other)
  Sender: FDA-Public Use
  Company Number: CN-SANDOZ-SDZ2023CN041135

PATIENT
  Age: 38 Year
  Sex: Female

DRUGS (4)
  1. PACLITAXEL [Suspect]
     Active Substance: PACLITAXEL
     Indication: Squamous cell carcinoma
     Dosage: 350 MG
     Route: 065
     Dates: start: 20221105
  2. CARBOPLATIN [Suspect]
     Active Substance: CARBOPLATIN
     Indication: Squamous cell carcinoma
     Dosage: 400 MG
     Route: 065
     Dates: start: 20221105
  3. CAMRELIZUMAB [Concomitant]
     Active Substance: CAMRELIZUMAB
     Indication: Immune enhancement therapy
     Dosage: UNK
     Route: 065
     Dates: start: 20221105
  4. ENDOSTATIN [Concomitant]
     Active Substance: ENDOSTATIN
     Indication: Squamous cell carcinoma
     Dosage: 210 MG
     Route: 065
     Dates: start: 20221105

REACTIONS (1)
  - Respiratory failure [Fatal]
